FAERS Safety Report 5158536-4 (Version None)
Quarter: 2006Q4

REPORT INFORMATION
  Report Type: 
  Country: None (occurrence: None)
  Receive Date: 20061128
  Receipt Date: 20061122
  Transmission Date: 20070319
  Serious: Yes (Life-Threatening, Hospitalization)
  Sender: FDA-Public Use
  Company Number: 2006AC02190

PATIENT
  Age: 92 Year
  Sex: Female

DRUGS (7)
  1. TENORMIN [Suspect]
     Indication: ACUTE MYOCARDIAL INFARCTION
     Route: 048
     Dates: end: 20060808
  2. AMIODARONE HYDROCHLORIDE [Interacting]
     Indication: ATRIAL FIBRILLATION
     Route: 048
     Dates: start: 20060315, end: 20060808
  3. AMIODARONE HYDROCHLORIDE [Interacting]
     Indication: ATRIAL FLUTTER
     Route: 048
     Dates: start: 20060315, end: 20060808
  4. COZAAR [Concomitant]
     Indication: ESSENTIAL HYPERTENSION
     Route: 048
  5. SEGURIL [Concomitant]
     Indication: ESSENTIAL HYPERTENSION
     Route: 048
  6. UNIKET [Concomitant]
     Indication: DRESSLER'S SYNDROME
     Route: 048
     Dates: end: 20060808
  7. OMEPRAZOLE [Concomitant]
     Route: 048
     Dates: end: 20060808

REACTIONS (2)
  - BRADYCARDIA [None]
  - DRUG INTERACTION [None]
